FAERS Safety Report 13791331 (Version 1)
Quarter: 2017Q3

REPORT INFORMATION
  Report Type: Spontaneous
  Country: FR (occurrence: FR)
  Receive Date: 20170725
  Receipt Date: 20170725
  Transmission Date: 20171127
  Serious: Yes (Death, Hospitalization)
  Sender: FDA-Public Use
  Company Number: FR-MYLANLABS-2017M1043460

PATIENT

DRUGS (2)
  1. SALBUTAMOL MYLAN 5 MG/5 ML, SOLUTION POUR PERFUSION [Suspect]
     Active Substance: ALBUTEROL
     Indication: BRONCHOSPASM
     Dosage: 0.4 MG/H
     Route: 042
     Dates: start: 20170515
  2. SALBUTAMOL MYLAN 5 MG/5 ML, SOLUTION POUR PERFUSION [Suspect]
     Active Substance: ALBUTEROL
     Dosage: UNK
     Dates: start: 20170517

REACTIONS (2)
  - Accidental underdose [Recovered/Resolved]
  - Condition aggravated [Recovered/Resolved]

NARRATIVE: CASE EVENT DATE: 20170515
